FAERS Safety Report 7410795-0 (Version None)
Quarter: 2011Q2

REPORT INFORMATION
  Report Type: 
  Country: None (occurrence: None)
  Receive Date: 20110413
  Receipt Date: 20110407
  Transmission Date: 20111010
  Serious: No
  Sender: FDA-Public Use
  Company Number: US-PFIZER INC-2011077442

PATIENT
  Sex: Female
  Weight: 62.58 kg

DRUGS (2)
  1. LYRICA [Suspect]
     Indication: NEURALGIA
     Dosage: 75 MG, 1X/DAY
     Route: 048
     Dates: start: 20080101, end: 20110407
  2. CLONAZEPAM [Concomitant]
     Dosage: UNK, AS NEEDED

REACTIONS (2)
  - VISION BLURRED [None]
  - DIZZINESS [None]
